FAERS Safety Report 18793741 (Version 2)
Quarter: 2021Q1

REPORT INFORMATION
  Report Type: Report from Study
  Country: FR (occurrence: FR)
  Receive Date: 20210127
  Receipt Date: 20210209
  Transmission Date: 20210419
  Serious: Yes (Life-Threatening)
  Sender: FDA-Public Use
  Company Number: FR-ROCHE-2757000

PATIENT
  Age: 57 Year
  Sex: Female
  Weight: 62 kg

DRUGS (7)
  1. VENETOCLAX. [Suspect]
     Active Substance: VENETOCLAX
     Indication: LYMPHOMA
     Dosage: LAST DOSE: 26/JUN/2020
     Route: 065
     Dates: start: 20190206
  2. BISOPROLOL [Concomitant]
     Active Substance: BISOPROLOL
  3. VALACICLOVIR [Concomitant]
     Active Substance: VALACYCLOVIR HYDROCHLORIDE
     Indication: PROPHYLAXIS
     Dates: start: 20190130
  4. THERALENE [Concomitant]
     Active Substance: TRIMEPRAZINE
     Indication: INSOMNIA
  5. ATEZOLIZUMAB. [Suspect]
     Active Substance: ATEZOLIZUMAB
     Indication: LYMPHOMA
     Dosage: LAST DOSE: 05/JUN/2020
     Route: 042
     Dates: start: 20190131
  6. KARDEGIC [Concomitant]
     Active Substance: ASPIRIN DL-LYSINE
     Indication: PROPHYLAXIS
  7. OBINUTUZUMAB. [Suspect]
     Active Substance: OBINUTUZUMAB
     Indication: LYMPHOMA
     Dosage: LAST DOSE: 04/JUL/2019
     Route: 042
     Dates: start: 20190130

REACTIONS (1)
  - Cholangiocarcinoma [Recovering/Resolving]

NARRATIVE: CASE EVENT DATE: 20200819
